FAERS Safety Report 4630551-6 (Version None)
Quarter: 2005Q2

REPORT INFORMATION
  Report Type: 
  Country: None (occurrence: None)
  Receive Date: 20050408
  Receipt Date: 20050405
  Transmission Date: 20051028
  Serious: Yes (Death)
  Sender: FDA-Public Use
  Company Number: DE-GLAXOSMITHKLINE-B0376749A

PATIENT
  Age: 55 Year
  Sex: Female

DRUGS (15)
  1. TOPOTECAN [Suspect]
     Dosage: 1MGM2 PER DAY
     Route: 042
     Dates: start: 20050324, end: 20050328
  2. CISPLATIN [Suspect]
     Dosage: 75MGM2 PER DAY
     Route: 042
     Dates: start: 20050324, end: 20050324
  3. BETAISODONA [Concomitant]
  4. TRAMADOL HCL [Concomitant]
  5. KLACID [Concomitant]
  6. PASPERTIN DROPS [Concomitant]
  7. NAVOBAN [Concomitant]
  8. DULCOLAX [Concomitant]
  9. CONCOR [Concomitant]
  10. PANTOPRAZOLE SODIUM [Concomitant]
  11. NOCTAMID [Concomitant]
  12. FORTECORTIN [Concomitant]
  13. AMPHOMORONAL [Concomitant]
  14. DIFLUCAN [Concomitant]
  15. ZOPICLON [Concomitant]

REACTIONS (5)
  - ASTHENIA [None]
  - CARDIOPULMONARY FAILURE [None]
  - ILL-DEFINED DISORDER [None]
  - SEPTIC SHOCK [None]
  - STOMATITIS [None]
